FAERS Safety Report 8193732-3 (Version None)
Quarter: 2012Q1

REPORT INFORMATION
  Report Type: 
  Country: None (occurrence: None)
  Receive Date: 20120308
  Receipt Date: 20120227
  Transmission Date: 20120608
  Serious: Yes (Life-Threatening, Hospitalization)
  Sender: FDA-Public Use
  Company Number: US-BAYER-2011-081866

PATIENT
  Age: 49 Year
  Sex: Female
  Weight: 51 kg

DRUGS (6)
  1. ONE-A-DAY [MINERALS NOS,VITAMINS NOS] [Concomitant]
     Dosage: UNK UNK, QD (ONE TABLET DAILY)
  2. METHYLPREDNISOLONE [Concomitant]
     Dosage: 4 MG, UNK (DOSPAK 21'S)
  3. YAZ [Suspect]
     Indication: CONTRACEPTION
     Dosage: UNK
     Dates: start: 20070123, end: 20070703
  4. ASPIRIN [Suspect]
  5. ASCORBIC ACID [Concomitant]
     Dosage: UNK UNK, QD (ONE TABLET DAILY)
  6. CYCLOBENZAPRINE [Concomitant]
     Dosage: 10 MG, UNK

REACTIONS (13)
  - CHEST PAIN [None]
  - GAIT DISTURBANCE [None]
  - FEELING ABNORMAL [None]
  - DYSPNOEA [None]
  - PULMONARY EMBOLISM [None]
  - DEEP VEIN THROMBOSIS [None]
  - INJURY [None]
  - PAIN [None]
  - ANXIETY [None]
  - ANHEDONIA [None]
  - PALPITATIONS [None]
  - ABDOMINAL DISCOMFORT [None]
  - GASTRITIS [None]
